FAERS Safety Report 7832556-0 (Version None)
Quarter: 2011Q4

REPORT INFORMATION
  Report Type: 
  Country: None (occurrence: None)
  Receive Date: 20111024
  Receipt Date: 20111014
  Transmission Date: 20120403
  Serious: Yes (Hospitalization)
  Sender: FDA-Public Use
  Company Number: US-BIOGENIDEC-2011BI039603

PATIENT
  Age: 50 Year
  Sex: Female

DRUGS (15)
  1. NIASPAN [Concomitant]
  2. AMANTADINE HCL [Concomitant]
  3. CEFUROXIME [Concomitant]
  4. METFORMIN HCL [Concomitant]
  5. IBUPROFEN [Concomitant]
  6. OMEPRAZOLE [Concomitant]
  7. TYSABRI [Suspect]
     Indication: MULTIPLE SCLEROSIS
     Route: 042
     Dates: start: 20070510, end: 20110310
  8. BLACK COHOSH [Concomitant]
  9. BACLOFEN [Concomitant]
  10. ZOCOR [Concomitant]
  11. EFFEXOR XR [Concomitant]
  12. ZESTRIL [Concomitant]
  13. AMANTADINE HCL [Concomitant]
  14. TYLENOL W/ CODEINE NO. 4 [Concomitant]
  15. CRANBERRY TABLET [Concomitant]

REACTIONS (2)
  - UROSEPSIS [None]
  - RENAL FAILURE ACUTE [None]
